FAERS Safety Report 6244511-5 (Version None)
Quarter: 2009Q2

REPORT INFORMATION
  Report Type: 
  Country: None (occurrence: None)
  Receive Date: 20090623
  Receipt Date: 20090623
  Transmission Date: 20091009
  Serious: Yes (Other)
  Sender: FDA-Public Use
  Company Number: None

PATIENT
  Age: 57 Year
  Sex: Female
  Weight: 51.7101 kg

DRUGS (1)
  1. ZICAM GEL SWABS MATRIXX [Suspect]
     Indication: NASOPHARYNGITIS
     Dosage: ONE GEL SWAB ONCE   ONE TIME  NASAL
     Route: 045
     Dates: start: 20090201, end: 20090315

REACTIONS (1)
  - NO ADVERSE EVENT [None]
